FAERS Safety Report 4707552-2 (Version None)
Quarter: 2005Q3

REPORT INFORMATION
  Report Type: 
  Country: None (occurrence: None)
  Receive Date: 20050706
  Receipt Date: 20050623
  Transmission Date: 20060218
  Serious: Yes (Hospitalization)
  Sender: FDA-Public Use
  Company Number: FR-JNJFOC-20050606531

PATIENT
  Age: 32 Year
  Sex: Female

DRUGS (6)
  1. EPITOMAX [Suspect]
     Indication: EPILEPSY
     Route: 049
  2. ANAFRANIL [Concomitant]
  3. CLONAZEPAM [Concomitant]
  4. ALPRAZOLAM [Concomitant]
  5. LYSANXIA [Concomitant]
  6. SKENAN [Concomitant]

REACTIONS (2)
  - CEREBROVASCULAR ACCIDENT [None]
  - COMA [None]
